FAERS Safety Report 5203410-8 (Version None)
Quarter: 2007Q1

REPORT INFORMATION
  Report Type: 
  Country: None (occurrence: None)
  Receive Date: 20070110
  Receipt Date: 20061228
  Transmission Date: 20070707
  Serious: Yes (Other)
  Sender: FDA-Public Use
  Company Number: DEWYE968928DEC06

PATIENT
  Age: 52 Year

DRUGS (1)
  1. ENBREL [Suspect]
     Indication: PSORIATIC ARTHROPATHY
     Dosage: UNKNOWN
     Route: 058
     Dates: start: 20061107

REACTIONS (4)
  - APHASIA [None]
  - ASTHENIA [None]
  - HYPOAESTHESIA [None]
  - HYPOAESTHESIA ORAL [None]
